FAERS Safety Report 14587332 (Version 1)
Quarter: 2018Q1

REPORT INFORMATION
  Report Type: Spontaneous
  Country: US (occurrence: US)
  Receive Date: 20180228
  Receipt Date: 20180228
  Transmission Date: 20180509
  Serious: No
  Sender: FDA-Public Use
  Company Number: None

PATIENT
  Age: 69 Year
  Sex: Female
  Weight: 64.8 kg

DRUGS (8)
  1. VITAMIN D3 [Concomitant]
     Active Substance: CHOLECALCIFEROL
  2. NAC (N-ACETYL-CYSTEINE) [Concomitant]
  3. ANTACID (^VPK ACI-BALANCE^) [Concomitant]
  4. NUPLAZID [Suspect]
     Active Substance: PIMAVANSERIN TARTRATE
     Indication: HALLUCINATION
     Dosage: ?          QUANTITY:2 TABLET(S);?
     Route: 048
     Dates: start: 20180129, end: 20180131
  5. CALCIUM/MAGNESIUM/POTASSIUM (^TRI-SALTS^) [Concomitant]
  6. PROBIOTIC (^PRIMEDOPHILUS ORIGINAL^) [Concomitant]
  7. MULTIPLE VITAMIN [Concomitant]
     Active Substance: VITAMINS
  8. VITAMIN B12 [Concomitant]
     Active Substance: CYANOCOBALAMIN

REACTIONS (2)
  - Muscular weakness [None]
  - Fall [None]

NARRATIVE: CASE EVENT DATE: 20180130
